FAERS Safety Report 13593505 (Version 1)
Quarter: 2017Q2

REPORT INFORMATION
  Report Type: Spontaneous
  Country: US (occurrence: US)
  Receive Date: 20170530
  Receipt Date: 20170530
  Transmission Date: 20170830
  Serious: No
  Sender: FDA-Public Use
  Company Number: US-TEVA-676743USA

PATIENT
  Age: 78 Year
  Sex: Female
  Weight: 64.92 kg

DRUGS (18)
  1. PLAVIX [Concomitant]
     Active Substance: CLOPIDOGREL BISULFATE
     Dosage: AT 8 AM
  2. K-EFFERVESCENT [Concomitant]
     Active Substance: POTASSIUM BICARBONATE
     Dosage: 1 DAILY AT 8 AM EVERY 2DAYS
  3. LOMOTIL [Concomitant]
     Active Substance: ATROPINE SULFATE\DIPHENOXYLATE HYDROCHLORIDE
     Dosage: 1 OR 2 TABLETS AS NEEDED
  4. DONEPEZIL. [Concomitant]
     Active Substance: DONEPEZIL
     Dosage: AT BEDTIME
  5. LEVEMIR [Concomitant]
     Active Substance: INSULIN DETEMIR
     Dosage: 20 U AT AM AND 28 U AT PM (SUPPER TIME)
  6. LIPITOR [Concomitant]
     Active Substance: ATORVASTATIN CALCIUM
     Dosage: AT BEDTIME
  7. SYNTHROID [Concomitant]
     Active Substance: LEVOTHYROXINE SODIUM
     Dosage: AT 8 AM
  8. LASIX [Concomitant]
     Active Substance: FUROSEMIDE
     Dosage: AT 8 AM
  9. VITAMIN D3 [Concomitant]
     Active Substance: CHOLECALCIFEROL
     Dosage: AT AM
  10. CINNAMON. [Concomitant]
     Active Substance: CINNAMON
     Dosage: AT NOON
  11. CALCIUM [Concomitant]
     Active Substance: CALCIUM
     Dosage: AT 8 AM
  12. LOFIBRA [Concomitant]
     Active Substance: FENOFIBRATE
     Dosage: AT 8 PM
  13. CRANBERRY. [Concomitant]
     Active Substance: CRANBERRY
     Dosage: AT AM WITH WATER
  14. CLOPIDOGREL [Suspect]
     Active Substance: CLOPIDOGREL BISULFATE
     Route: 048
     Dates: start: 201512
  15. LEVEMIR [Concomitant]
     Active Substance: INSULIN DETEMIR
     Dosage: 35 U AT 8 AM AND 30 U AT 8 PM
     Dates: start: 20130427
  16. AMLODIPINE [Concomitant]
     Active Substance: AMLODIPINE BESYLATE
     Dosage: AT 8 AM CHECK BP AT NOON IF 140/40 TAKE ONE MORE
  17. ATENOLOL. [Concomitant]
     Active Substance: ATENOLOL
     Dosage: AT 8 AM
  18. LEVEMIR [Concomitant]
     Active Substance: INSULIN DETEMIR
     Dosage: 30 U AT AM AND 38 U AT PM
     Dates: start: 20110817

REACTIONS (2)
  - Drug ineffective [Unknown]
  - Contusion [Unknown]

NARRATIVE: CASE EVENT DATE: 201606
